FAERS Safety Report 24334329 (Version 1)
Quarter: 2024Q3

REPORT INFORMATION
  Report Type: Report from Study
  Country: CA (occurrence: CA)
  Receive Date: 20240918
  Receipt Date: 20240918
  Transmission Date: 20241016
  Serious: Yes (Other)
  Sender: SAMSUNG BIOEPIS
  Company Number: CA-SAMSUNG BIOEPIS-SB-2024-27712

PATIENT
  Age: 21 Year
  Sex: Female

DRUGS (1)
  1. RENFLEXIS [Suspect]
     Active Substance: INFLIXIMAB-ABDA
     Indication: Colitis ulcerative
     Route: 042
     Dates: start: 20200602

REACTIONS (9)
  - Colitis ulcerative [Unknown]
  - Syncope [Unknown]
  - Abdominal pain lower [Unknown]
  - Nausea [Unknown]
  - Hypoaesthesia [Recovered/Resolved]
  - Pain [Recovered/Resolved]
  - Proctitis [Unknown]
  - Faecal calprotectin abnormal [Unknown]
  - Drug ineffective [Unknown]
